FAERS Safety Report 5767836-6 (Version None)
Quarter: 2008Q2

REPORT INFORMATION
  Report Type: 
  Country: None (occurrence: None)
  Receive Date: 20080612
  Receipt Date: 20080609
  Transmission Date: 20081010
  Serious: Yes (Death, Other)
  Sender: FDA-Public Use
  Company Number: PHBS2008BR02165

PATIENT
  Age: 68 Year
  Sex: Male

DRUGS (2)
  1. GLEEVEC [Suspect]
     Indication: CHRONIC MYELOID LEUKAEMIA
     Dosage: 400 MG, QD
     Route: 048
  2. CHEMOTHERAPEUTICS NOS [Concomitant]

REACTIONS (6)
  - ABDOMINAL WALL MASS [None]
  - CARCINOID TUMOUR [None]
  - CHROMOSOME ANALYSIS ABNORMAL [None]
  - INFECTION [None]
  - LIVER DISORDER [None]
  - METASTASES TO ABDOMINAL WALL [None]
